FAERS Safety Report 24198391 (Version 1)
Quarter: 2024Q3

REPORT INFORMATION
  Report Type: Spontaneous
  Country: FR (occurrence: FR)
  Receive Date: 20240812
  Receipt Date: 20240812
  Transmission Date: 20241017
  Serious: Yes (Other)
  Sender: AUROBINDO
  Company Number: FR-AFSSAPS-AVNY2024000231

PATIENT
  Age: 29 Year
  Sex: Female
  Weight: 65 kg

DRUGS (1)
  1. ALPRAZOLAM [Suspect]
     Active Substance: ALPRAZOLAM
     Indication: Product used for unknown indication
     Dosage: UNK (THE PATIENT ADMITTED TAKING 15 TABLETS OF 0.5 MG. 5 OTHER PACKS FOUND EMPTY. DSI 45 MG OF ALPRA
     Route: 048
     Dates: start: 20240628, end: 20240628

REACTIONS (2)
  - Depressed level of consciousness [Unknown]
  - Drug use disorder [Unknown]

NARRATIVE: CASE EVENT DATE: 20240628
